FAERS Safety Report 25837973 (Version 1)
Quarter: 2025Q3

REPORT INFORMATION
  Report Type: Spontaneous
  Country: EU (occurrence: EU)
  Receive Date: 20250923
  Receipt Date: 20250923
  Transmission Date: 20251021
  Serious: Yes (Hospitalization)
  Sender: MYLAN
  Company Number: None

PATIENT
  Age: 78 Year
  Sex: Male
  Weight: 63 kg

DRUGS (1)
  1. ATORVASTATIN [Suspect]
     Active Substance: ATORVASTATIN
     Indication: Cardiovascular event prophylaxis
     Dosage: 40 MILLIGRAM, QD
     Dates: start: 202407, end: 20250829

REACTIONS (2)
  - Autoimmune myositis [Not Recovered/Not Resolved]
  - HMG CoA reductase antibody test [Not Recovered/Not Resolved]

NARRATIVE: CASE EVENT DATE: 20250601
